FAERS Safety Report 9988065 (Version 2)
Quarter: 2014Q1

REPORT INFORMATION
  Report Type: Spontaneous
  Country: ES (occurrence: ES)
  Receive Date: 20140308
  Receipt Date: 20140318
  Transmission Date: 20141002
  Serious: Yes (Hospitalization)
  Sender: FDA-Public Use
  Company Number: ES-ROCHE-1361458

PATIENT
  Sex: Female

DRUGS (8)
  1. XOLAIR [Suspect]
     Indication: ASTHMA
     Route: 058
     Dates: start: 20110331
  2. XOLAIR [Suspect]
     Route: 065
     Dates: end: 20140210
  3. SERETIDE [Concomitant]
  4. DACORTIN [Concomitant]
  5. SINGULAIR [Concomitant]
  6. VENTOLIN [Concomitant]
  7. AERIUS [Concomitant]
  8. AVAMYS [Concomitant]

REACTIONS (4)
  - Sarcoidosis [Recovered/Resolved]
  - Weight decreased [Unknown]
  - Abdominal discomfort [Unknown]
  - Pyrexia [Unknown]
